FAERS Safety Report 11231880 (Version 1)
Quarter: 2015Q2

REPORT INFORMATION
  Report Type: Spontaneous
  Country: US (occurrence: None)
  Receive Date: 20150630
  Receipt Date: 20150630
  Transmission Date: 20150821
  Serious: Yes (Other)
  Sender: FDA-Public Use
  Company Number: None

PATIENT
  Age: 70 Year
  Sex: Male
  Weight: 69.85 kg

DRUGS (1)
  1. RAMUCIRUMAB 100MG LILLY [Suspect]
     Active Substance: RAMUCIRUMAB
     Indication: OESOPHAGEAL CARCINOMA
     Route: 042
     Dates: start: 20150624, end: 20150624

REACTIONS (5)
  - Nausea [None]
  - Rash [None]
  - Dyspnoea [None]
  - Urticaria [None]
  - Vomiting [None]

NARRATIVE: CASE EVENT DATE: 20150624
